FAERS Safety Report 7414349-1 (Version None)
Quarter: 2011Q2

REPORT INFORMATION
  Report Type: 
  Country: None (occurrence: None)
  Receive Date: 20110414
  Receipt Date: 20110407
  Transmission Date: 20111010
  Serious: Yes (Death)
  Sender: FDA-Public Use
  Company Number: JP-JNJFOC-20110404130

PATIENT
  Age: 55 Year
  Sex: Male

DRUGS (6)
  1. TASMOLIN [Suspect]
     Indication: SCHIZOPHRENIA
     Route: 065
  2. BENZALIN [Suspect]
     Indication: SCHIZOPHRENIA
     Route: 048
  3. RISPERDAL [Suspect]
     Indication: SCHIZOPHRENIA
     Route: 048
  4. SEROQUEL [Suspect]
     Indication: SCHIZOPHRENIA
     Route: 048
  5. ABILIFY [Suspect]
     Indication: SCHIZOPHRENIA
     Route: 048
  6. HALCION [Suspect]
     Indication: SCHIZOPHRENIA
     Route: 048

REACTIONS (1)
  - DEATH [None]
